FAERS Safety Report 18411960 (Version 1)
Quarter: 2020Q4

REPORT INFORMATION
  Report Type: Spontaneous
  Country: CZ (occurrence: CZ)
  Receive Date: 20201021
  Receipt Date: 20201021
  Transmission Date: 20210114
  Serious: Yes (Hospitalization, Disabling, Other)
  Sender: FDA-Public Use
  Company Number: CZ-PFIZER INC-2020352570

PATIENT
  Age: 22 Year
  Sex: Male
  Weight: 90 kg

DRUGS (3)
  1. PREGABALIN. [Suspect]
     Active Substance: PREGABALIN
     Dosage: IMPULSIVE ADMINISTRATION OF HIGH DOSES UP TO 900 MG
  2. VIAGRA [Suspect]
     Active Substance: SILDENAFIL CITRATE
     Indication: ERECTILE DYSFUNCTION
     Dosage: ONE TABLET BEFORE INTERCOURSE
     Route: 048
     Dates: start: 2019, end: 2019
  3. CLONAZEPAM. [Suspect]
     Active Substance: CLONAZEPAM
     Dosage: IMPULSIVE ADMINISTRATION OF HIGH DOSES UP TO 900 MG

REACTIONS (3)
  - Diplopia [Not Recovered/Not Resolved]
  - Substance abuse [Not Recovered/Not Resolved]
  - Intentional product use issue [Not Recovered/Not Resolved]

NARRATIVE: CASE EVENT DATE: 2019
